FAERS Safety Report 6744475-1 (Version None)
Quarter: 2010Q2

REPORT INFORMATION
  Report Type: 
  Country: None (occurrence: None)
  Receive Date: 20100527
  Receipt Date: 20100518
  Transmission Date: 20101027
  Serious: Yes (Other)
  Sender: FDA-Public Use
  Company Number: ES-ABBOTT-10P-144-0645528-00

PATIENT
  Age: 8 Year
  Sex: Female

DRUGS (2)
  1. HUMIRA [Suspect]
     Indication: COLITIS
     Route: 058
     Dates: end: 20100501
  2. METOTREXATE [Concomitant]
     Indication: COLITIS
     Dates: end: 20100501

REACTIONS (2)
  - LENTIGO [None]
  - MELANOCYTIC NAEVUS [None]
